FAERS Safety Report 5379666-8 (Version None)
Quarter: 2007Q2

REPORT INFORMATION
  Report Type: 
  Country: None (occurrence: None)
  Receive Date: 20070530
  Receipt Date: 20070305
  Transmission Date: 20071010
  Serious: No
  Sender: FDA-Public Use
  Company Number: 2007PV031171

PATIENT
  Age: 63 Year
  Sex: Male

DRUGS (4)
  1. BYETTA [Suspect]
     Indication: DIABETES MELLITUS NON-INSULIN-DEPENDENT
     Dosage: 10 MCG; BID; SC, 5 MCG; BID; SC
     Route: 058
     Dates: start: 20070130, end: 20070201
  2. BYETTA [Suspect]
     Indication: DIABETES MELLITUS NON-INSULIN-DEPENDENT
     Dosage: 10 MCG; BID; SC, 5 MCG; BID; SC
     Route: 058
     Dates: start: 20070201
  3. ACTOS [Concomitant]
  4. GLUCOPHAGE [Concomitant]

REACTIONS (5)
  - DECREASED APPETITE [None]
  - INJECTION SITE BRUISING [None]
  - INJECTION SITE PAIN [None]
  - STOMACH DISCOMFORT [None]
  - WEIGHT DECREASED [None]
